FAERS Safety Report 10269066 (Version 1)
Quarter: 2014Q2

REPORT INFORMATION
  Report Type: Spontaneous
  Country: IN (occurrence: IN)
  Receive Date: 20140630
  Receipt Date: 20140630
  Transmission Date: 20141212
  Serious: Yes (Other)
  Sender: FDA-Public Use
  Company Number: PHHY2014IN078288

PATIENT
  Age: 52 Year
  Sex: Male

DRUGS (1)
  1. METRONIDAZOLE [Suspect]
     Indication: HEPATIC AMOEBIASIS
     Dosage: 144 G, CUMULATIVE DOSE:OVER 4 MONTHS
     Route: 048

REACTIONS (5)
  - Neurotoxicity [Recovered/Resolved]
  - Dysarthria [Recovered/Resolved]
  - Gait disturbance [Recovered/Resolved]
  - Ataxia [Recovered/Resolved]
  - Tremor [Not Recovered/Not Resolved]
